FAERS Safety Report 5195671-9 (Version None)
Quarter: 2006Q4

REPORT INFORMATION
  Report Type: 
  Country: None (occurrence: None)
  Receive Date: 20061222
  Receipt Date: 20061222
  Transmission Date: 20070319
  Serious: Yes (Hospitalization)
  Sender: FDA-Public Use
  Company Number: None

PATIENT
  Sex: Female
  Weight: 67 kg

DRUGS (3)
  1. TEMOZOLOMIDE [Suspect]
     Dosage: 4750 MG
  2. TEMOZOLOMIDE [Suspect]
  3. TEMOZOLOMIDE [Suspect]

REACTIONS (3)
  - ABDOMINAL PAIN UPPER [None]
  - GALLBLADDER DISORDER [None]
  - PLATELET COUNT DECREASED [None]
